FAERS Safety Report 6304623-4 (Version None)
Quarter: 2009Q3

REPORT INFORMATION
  Report Type: 
  Country: None (occurrence: None)
  Receive Date: 20090811
  Receipt Date: 20090803
  Transmission Date: 20100115
  Serious: Yes (Hospitalization, Other)
  Sender: FDA-Public Use
  Company Number: JP-JNJFOC-20090800215

PATIENT

DRUGS (6)
  1. RISPERDAL [Suspect]
     Indication: DRUG USE FOR UNKNOWN INDICATION
     Route: 048
  2. MAGLAX [Concomitant]
     Route: 048
  3. PROMETHAZINE HCL [Concomitant]
     Route: 065
  4. SELBEX [Concomitant]
     Route: 048
  5. PRIMPERAN [Concomitant]
     Route: 065
  6. LAXOBERON [Concomitant]
     Route: 048

REACTIONS (2)
  - ILEUS [None]
  - NAUSEA [None]
